FAERS Safety Report 8854931 (Version 1)
Quarter: 2012Q4

REPORT INFORMATION
  Report Type: Report from Study
  Country: CA (occurrence: CA)
  Receive Date: 20121023
  Receipt Date: 20121023
  Transmission Date: 20130627
  Serious: Yes (Other)
  Sender: FDA-Public Use
  Company Number: CA-JNJFOC-20121007473

PATIENT
  Sex: Female
  Weight: 56.8 kg

DRUGS (3)
  1. REMICADE [Suspect]
     Indication: CROHN^S DISEASE
     Route: 042
     Dates: start: 20120822
  2. FILGRASTIM [Concomitant]
     Route: 065
  3. ANTITHYROID DRUG, UNSPECIFIED [Concomitant]
     Route: 065

REACTIONS (2)
  - Abdominal abscess [Not Recovered/Not Resolved]
  - Fistula [Not Recovered/Not Resolved]
